FAERS Safety Report 22227296 (Version 1)
Quarter: 2023Q2

REPORT INFORMATION
  Report Type: Spontaneous
  Country: US (occurrence: US)
  Receive Date: 20230419
  Receipt Date: 20230419
  Transmission Date: 20230722
  Serious: No
  Sender: FDA-Public Use
  Company Number: US-ELI_LILLY_AND_COMPANY-US202304007021

PATIENT
  Sex: Female

DRUGS (5)
  1. HUMALOG [Suspect]
     Active Substance: INSULIN LISPRO
     Indication: Diabetes mellitus
     Dosage: UNK UNK, UNKNOWN
     Route: 065
  2. HUMALOG [Suspect]
     Active Substance: INSULIN LISPRO
     Indication: Diabetes mellitus
     Dosage: UNK UNK, UNKNOWN
     Route: 065
     Dates: start: 2018
  3. OMEGA 3 [DOCOSAHEXAENOIC ACID;EICOSAPENTAENOI [Concomitant]
     Indication: Fatty acid deficiency
  4. VITAMIN B COMPLEX [Concomitant]
     Active Substance: CYANOCOBALAMIN\DEXPANTHENOL\NIACINAMIDE\PYRIDOXINE HYDROCHLORIDE\RIBOFLAVIN 5^-PHOSPHATE SODIUM\THIA
     Indication: Vitamin B12 deficiency
     Dosage: 1 DOSAGE FORM, BID
  5. FOLIC ACID [Concomitant]
     Active Substance: FOLIC ACID
     Indication: Fatty acid deficiency
     Dosage: 1 DOSAGE FORM

REACTIONS (6)
  - Blood glucose increased [Unknown]
  - Visual impairment [Unknown]
  - Incorrect dose administered [Unknown]
  - Blood glucose fluctuation [Unknown]
  - Memory impairment [Unknown]
  - Blood glucose decreased [Unknown]
